FAERS Safety Report 4467463-7 (Version None)
Quarter: 2004Q4

REPORT INFORMATION
  Report Type: 
  Country: None (occurrence: None)
  Receive Date: 20041006
  Receipt Date: 20040915
  Transmission Date: 20050328
  Serious: Yes (Hospitalization)
  Sender: FDA-Public Use
  Company Number: CH-MERCK-0409CHE00029

PATIENT
  Age: 79 Year
  Sex: Male

DRUGS (3)
  1. [THERAPY UNSPECIFIED] [Concomitant]
     Route: 065
  2. TRUSOPT [Concomitant]
     Indication: GLAUCOMA
     Route: 048
     Dates: end: 20020312
  3. TIMOPTIC [Suspect]
     Indication: GLAUCOMA
     Route: 047
     Dates: end: 20020312

REACTIONS (1)
  - CARDIAC FAILURE [None]
